FAERS Safety Report 9912061 (Version 1)
Quarter: 2014Q1

REPORT INFORMATION
  Report Type: Spontaneous
  Country: FR (occurrence: FR)
  Receive Date: 20140219
  Receipt Date: 20140219
  Transmission Date: 20141002
  Serious: Yes (Hospitalization)
  Sender: FDA-Public Use
  Company Number: FR-MYLANLABS-2014S1002714

PATIENT
  Age: 32 Year
  Sex: Female

DRUGS (1)
  1. PAROXETINE [Suspect]
     Indication: ABDOMINAL PAIN
     Route: 048
     Dates: start: 20120619, end: 20120620

REACTIONS (10)
  - Drug dispensing error [Recovered/Resolved]
  - Accidental overdose [Recovered/Resolved]
  - Nausea [Recovering/Resolving]
  - Vomiting [Recovering/Resolving]
  - Tachycardia [Recovering/Resolving]
  - Vertigo [Recovering/Resolving]
  - Insomnia [Recovering/Resolving]
  - Muscular weakness [Unknown]
  - Anxiety [Unknown]
  - Radicular pain [Not Recovered/Not Resolved]
